FAERS Safety Report 9967232 (Version 2)
Quarter: 2014Q1

REPORT INFORMATION
  Report Type: Report from Study
  Country: None (occurrence: US)
  Receive Date: 20140305
  Receipt Date: 20140305
  Transmission Date: 20141002
  Serious: No
  Sender: FDA-Public Use
  Company Number: US-ABBVIE-13P-163-1075628-00

PATIENT
  Age: 51 Year
  Sex: Male

DRUGS (10)
  1. HUMIRA [Suspect]
     Indication: HIDRADENITIS
     Route: 058
     Dates: start: 201301
  2. ACID REDUCER BY EQUATE [Concomitant]
     Indication: PRODUCT USED FOR UNKNOWN INDICATION
  3. ALBUTEROL [Concomitant]
     Indication: ASTHMA
     Dosage: 2 SPRAYS
  4. GLYBURIDE/METFORMIN [Concomitant]
     Indication: DIABETES MELLITUS
     Dosage: 2.5/500 MG
  5. LISINOPRIL [Concomitant]
     Indication: PRODUCT USED FOR UNKNOWN INDICATION
  6. FLOMAX [Concomitant]
     Indication: BENIGN PROSTATIC HYPERPLASIA
  7. DICYCLOMINE [Concomitant]
     Indication: PRODUCT USED FOR UNKNOWN INDICATION
     Dosage: AT HS
  8. PAXIL [Concomitant]
     Indication: SOCIAL PHOBIA
  9. PRAVASTATIN [Concomitant]
     Indication: BLOOD CHOLESTEROL INCREASED
  10. ACETAMINOPHEN PM [Concomitant]
     Indication: INSOMNIA
     Dosage: Q HS

REACTIONS (8)
  - Photophobia [Unknown]
  - Drug ineffective [Not Recovered/Not Resolved]
  - Upper respiratory tract infection [Unknown]
  - Off label use [Not Recovered/Not Resolved]
  - Dry skin [Not Recovered/Not Resolved]
  - Eye disorder [Not Recovered/Not Resolved]
  - Strabismus [Not Recovered/Not Resolved]
  - Ocular rosacea [Not Recovered/Not Resolved]
